FAERS Safety Report 9273693 (Version 1)
Quarter: 2013Q2

REPORT INFORMATION
  Report Type: Spontaneous
  Country: US (occurrence: US)
  Receive Date: 20130506
  Receipt Date: 20130506
  Transmission Date: 20140414
  Serious: Yes (Other)
  Sender: FDA-Public Use
  Company Number: US-DX529-2013DX000073

PATIENT
  Age: 39 Year
  Sex: Female
  Weight: 99.79 kg

DRUGS (3)
  1. KALBITOR [Suspect]
     Indication: HEREDITARY ANGIOEDEMA
     Route: 058
     Dates: start: 201206
  2. KALBITOR [Suspect]
     Indication: HEREDITARY ANGIOEDEMA
     Route: 058
     Dates: start: 20130415, end: 20130415
  3. KALBITOR [Suspect]
     Indication: HEREDITARY ANGIOEDEMA
     Route: 058
     Dates: start: 20130417, end: 20130417

REACTIONS (3)
  - Multiple sclerosis [Unknown]
  - Hereditary angioedema [Recovered/Resolved]
  - Condition aggravated [None]
